FAERS Safety Report 21985998 (Version 1)
Quarter: 2023Q1

REPORT INFORMATION
  Report Type: Spontaneous
  Country: US (occurrence: None)
  Receive Date: 20230211
  Receipt Date: 20230211
  Transmission Date: 20230418
  Serious: Yes (Disabling)
  Sender: FDA-Public Use
  Company Number: None

PATIENT
  Age: 65 Year
  Sex: Male
  Weight: 99 kg

DRUGS (8)
  1. REPATHA [Suspect]
     Active Substance: EVOLOCUMAB
     Indication: Blood cholesterol increased
     Dates: start: 20220901, end: 20230112
  2. Metropol [Concomitant]
  3. LEVOTHYROXINE [Concomitant]
     Active Substance: LEVOTHYROXINE
  4. ROPINIROLE [Concomitant]
     Active Substance: ROPINIROLE
  5. PROZAC [Concomitant]
     Active Substance: FLUOXETINE HYDROCHLORIDE
  6. ESZOPICLONE [Concomitant]
     Active Substance: ESZOPICLONE
  7. VITAMINS [Concomitant]
     Active Substance: VITAMINS
  8. MELATONIN [Concomitant]
     Active Substance: MELATONIN

REACTIONS (8)
  - Myalgia [None]
  - Asthenia [None]
  - Sleep disorder [None]
  - Abdominal distension [None]
  - Constipation [None]
  - Dyspepsia [None]
  - Therapy cessation [None]
  - Exercise tolerance decreased [None]

NARRATIVE: CASE EVENT DATE: 20221031
